FAERS Safety Report 16048299 (Version 1)
Quarter: 2019Q1

REPORT INFORMATION
  Report Type: Spontaneous
  Country: CA (occurrence: CA)
  Receive Date: 20190307
  Receipt Date: 20190307
  Transmission Date: 20190418
  Serious: Yes (Death)
  Sender: FDA-Public Use
  Company Number: CA-PFIZER INC-2019100769

PATIENT
  Age: 67 Year
  Sex: Male
  Weight: 205 kg

DRUGS (8)
  1. TIAZAC [DILTIAZEM HYDROCHLORIDE] [Concomitant]
  2. REVATIO [Suspect]
     Active Substance: SILDENAFIL CITRATE
     Indication: PULMONARY HYPERTENSION
     Dosage: 20 MG, 3X/DAY
     Route: 048
     Dates: start: 20170306
  3. SPIRONOLACTONE TEVA [Concomitant]
     Active Substance: SPIRONOLACTONE
  4. XARELTO [Concomitant]
     Active Substance: RIVAROXABAN
  5. INSPRA [Concomitant]
     Active Substance: EPLERENONE
     Dosage: UNK
  6. AZITHROMYCIN ANHYDROUS. [Concomitant]
     Active Substance: AZITHROMYCIN ANHYDROUS
     Dosage: 500 MG (2 TABLETS) 3 TIMES A WEEK
  7. FUROSEMIDE. [Concomitant]
     Active Substance: FUROSEMIDE
  8. MAR ALLOPURINOL [Concomitant]

REACTIONS (1)
  - Death [Fatal]

NARRATIVE: CASE EVENT DATE: 20190228
